FAERS Safety Report 13230994 (Version 3)
Quarter: 2017Q1

REPORT INFORMATION
  Report Type: Spontaneous
  Country: US (occurrence: US)
  Receive Date: 20170214
  Receipt Date: 20170315
  Transmission Date: 20170428
  Serious: Yes (Hospitalization)
  Sender: FDA-Public Use
  Company Number: US-SA-2016SA133567

PATIENT
  Age: 87 Year
  Sex: Male

DRUGS (3)
  1. ASPERCREME WITH LIDOCAINE [Suspect]
     Active Substance: LIDOCAINE
     Indication: BACK PAIN
     Route: 065
  2. ASPERCREME NOS [Concomitant]
     Active Substance: MENTHOL\TROLAMINE SALICYLATE
     Indication: BACK PAIN
  3. ASPERCREME WITH LIDOCAINE [Suspect]
     Active Substance: LIDOCAINE
     Indication: BACK PAIN
     Route: 065

REACTIONS (2)
  - Drug ineffective [Unknown]
  - Renal impairment [Unknown]
